FAERS Safety Report 7069717-7 (Version None)
Quarter: 2010Q4

REPORT INFORMATION
  Report Type: 
  Country: None (occurrence: None)
  Receive Date: 20101028
  Receipt Date: 20100506
  Transmission Date: 20110411
  Serious: No
  Sender: FDA-Public Use
  Company Number: US-WYE-H15129610

PATIENT
  Sex: Female
  Weight: 104.42 kg

DRUGS (1)
  1. PROTONIX [Suspect]
     Indication: GASTROOESOPHAGEAL REFLUX DISEASE
     Dosage: UNKNOWN
     Dates: start: 20100504, end: 20100506

REACTIONS (1)
  - ABDOMINAL PAIN UPPER [None]
